FAERS Safety Report 5318050-X (Version None)
Quarter: 2007Q2

REPORT INFORMATION
  Report Type: 
  Country: None (occurrence: None)
  Receive Date: 20070504
  Receipt Date: 20070504
  Transmission Date: 20071010
  Serious: Yes (Hospitalization)
  Sender: FDA-Public Use
  Company Number: None

PATIENT
  Age: 82 Year
  Sex: Male
  Weight: 73 kg

DRUGS (9)
  1. BACTRIM [Suspect]
     Indication: URINARY TRACT INFECTION
     Dosage: 800/160 BID
     Dates: start: 20070316, end: 20070322
  2. RANITIDINE HCL [Concomitant]
  3. POTASSIUM CHLORIDE [Concomitant]
  4. CLONIDINE HCL [Concomitant]
  5. ASPIRIN 25MG/DIPYRIDAMOLE [Concomitant]
  6. TERAZOSIN HCL [Concomitant]
  7. LISINOPRIL [Concomitant]
  8. INSULIN SYRINGE 0.5ML LOW DOSE 29G 0.5IN [Concomitant]
  9. METOPROLOL TARTRATE [Concomitant]

REACTIONS (4)
  - DIARRHOEA [None]
  - NAUSEA [None]
  - RASH [None]
  - VOMITING [None]
